FAERS Safety Report 8501788-0 (Version None)
Quarter: 2012Q3

REPORT INFORMATION
  Report Type: 
  Country: None (occurrence: None)
  Receive Date: 20120705
  Receipt Date: 20120705
  Transmission Date: 20120928
  Serious: Yes (Other)
  Sender: FDA-Public Use
  Company Number: None

PATIENT
  Sex: Female

DRUGS (3)
  1. RISEDRONATE SODIUM [Suspect]
     Indication: OSTEOPOROSIS
     Dosage: ONE A WEEK PO
     Route: 048
  2. ALENDRONATE SODIUM [Concomitant]
  3. ASTATIN [Concomitant]

REACTIONS (5)
  - ARTHRALGIA [None]
  - BONE PAIN [None]
  - SPINAL PAIN [None]
  - PAIN IN EXTREMITY [None]
  - NECK PAIN [None]
